FAERS Safety Report 5383552-7 (Version None)
Quarter: 2007Q3

REPORT INFORMATION
  Report Type: 
  Country: None (occurrence: None)
  Receive Date: 20070706
  Receipt Date: 20070608
  Transmission Date: 20080115
  Serious: Yes (Death, Hospitalization)
  Sender: FDA-Public Use
  Company Number: 2007BM000064

PATIENT
  Age: 36 Year
  Sex: Male

DRUGS (4)
  1. PREDNISOLONE [Suspect]
     Indication: RENAL TRANSPLANT
  2. CYCLOSPORINE [Suspect]
     Indication: RENAL TRANSPLANT
  3. AZATHIOPRINE [Suspect]
     Indication: RENAL TRANSPLANT
  4. ORAPRED [Suspect]

REACTIONS (12)
  - BLOOD AMYLASE INCREASED [None]
  - BLOOD CREATININE INCREASED [None]
  - BLOOD GLUCOSE INCREASED [None]
  - BLOOD UREA INCREASED [None]
  - CHRONIC ALLOGRAFT NEPHROPATHY [None]
  - ENCEPHALOPATHY [None]
  - HAEMOGLOBIN DECREASED [None]
  - HEPATITIS C POSITIVE [None]
  - HEPATITIS CHOLESTATIC [None]
  - PROTEIN TOTAL DECREASED [None]
  - PROTEINURIA [None]
  - SPLENOMEGALY [None]
